FAERS Safety Report 4643085-X (Version None)
Quarter: 2005Q2

REPORT INFORMATION
  Report Type: 
  Country: None (occurrence: None)
  Receive Date: 20050421
  Receipt Date: 20050408
  Transmission Date: 20051028
  Serious: Yes (Death)
  Sender: FDA-Public Use
  Company Number: 2005056103

PATIENT
  Age: 22 Year
  Sex: Female
  Weight: 52 kg

DRUGS (4)
  1. HALCION [Suspect]
     Indication: ILL-DEFINED DISORDER
     Dosage: 0.25 MG, ORAL
     Route: 048
  2. FLUNITRAZEPAM (FLUNITRAZEPAM) [Suspect]
     Indication: ILL-DEFINED DISORDER
     Dosage: 2 MG, ORAL;  2 MG, INTRAVENOUS
     Route: 048
  3. NITRAZEPAM [Suspect]
     Indication: ILL-DEFINED DISORDER
     Dosage: 10 MG, ORAL
     Route: 048
  4. LEVOMEPROMAZINE MALEATE (LEVOMEPROMAZINE MALEATE) [Suspect]
     Indication: ILL-DEFINED DISORDER
     Dosage: 25 MG, ORAL
     Route: 048

REACTIONS (1)
  - DEATH [None]
